FAERS Safety Report 12192037 (Version 3)
Quarter: 2016Q2

REPORT INFORMATION
  Report Type: Other
  Country: CA (occurrence: CA)
  Receive Date: 20160318
  Receipt Date: 20160415
  Transmission Date: 20160815
  Serious: Yes (Other)
  Sender: FDA-Public Use
  Company Number: CA-SHIRE-CA201603167

PATIENT
  Age: 45 Year
  Sex: Female
  Weight: 59.3 kg

DRUGS (7)
  1. FIRAZYR [Suspect]
     Active Substance: ICATIBANT ACETATE
     Indication: HEREDITARY ANGIOEDEMA
     Dosage: 30 MG, AS REQ^D
     Route: 058
     Dates: start: 20160302
  2. ADVAIR HFA [Concomitant]
     Active Substance: FLUTICASONE PROPIONATE\SALMETEROL XINAFOATE
     Indication: ASTHMA
     Dosage: UNK (250/25)(2 PUFFS), 2X/DAY:BID
     Route: 055
     Dates: start: 20160314
  3. SINGULAIR [Concomitant]
     Active Substance: MONTELUKAST SODIUM
     Indication: ASTHMA
     Dosage: 10 MG, 1X/DAY:QD
     Route: 048
     Dates: start: 20160114
  4. SINGULAIR [Concomitant]
     Active Substance: MONTELUKAST SODIUM
     Indication: RHINITIS ALLERGIC
  5. FLOVENT [Concomitant]
     Active Substance: FLUTICASONE PROPIONATE
     Indication: ASTHMA
     Dosage: 250 ?G (2 PUFFS), 2X/DAY:BID
     Route: 055
     Dates: start: 2013, end: 20160314
  6. BERINERT [Concomitant]
     Active Substance: HUMAN C1-ESTERASE INHIBITOR
     Indication: PRODUCT USED FOR UNKNOWN INDICATION
     Dosage: UNK, UNKNOWN
     Route: 065
     Dates: start: 2004
  7. C1-INHIBITOR, PLASMA DERIVED [Concomitant]
     Indication: HEREDITARY ANGIOEDEMA
     Dosage: 40 IU/KG, OTHER (TWICE A WEEK)
     Route: 065
     Dates: start: 20150507

REACTIONS (3)
  - Dry mouth [Unknown]
  - Asthma [Recovering/Resolving]
  - Pharyngeal oedema [Recovered/Resolved]

NARRATIVE: CASE EVENT DATE: 20160302
